FAERS Safety Report 22253683 (Version 1)
Quarter: 2023Q2

REPORT INFORMATION
  Report Type: Spontaneous
  Country: US (occurrence: US)
  Receive Date: 20230426
  Receipt Date: 20230426
  Transmission Date: 20230721
  Serious: Yes (Other)
  Sender: FDA-Public Use
  Company Number: US-002147023-NVSC2023US090848

PATIENT

DRUGS (1)
  1. CARBOPLATIN [Suspect]
     Active Substance: CARBOPLATIN
     Indication: Retinoblastoma
     Dosage: 0.3 MG (INITIAL DOSE), EVERY 14 TO 21 DAYS
     Route: 031

REACTIONS (4)
  - Blindness [Unknown]
  - Cataract [Unknown]
  - Product use in unapproved indication [Unknown]
  - Off label use [Unknown]
